FAERS Safety Report 7477691-4 (Version None)
Quarter: 2011Q2

REPORT INFORMATION
  Report Type: 
  Country: None (occurrence: None)
  Receive Date: 20110513
  Receipt Date: 20110407
  Transmission Date: 20111010
  Serious: Yes (Other)
  Sender: FDA-Public Use
  Company Number: US-BAYER-201028643NA

PATIENT
  Age: 38 Year
  Sex: Female
  Weight: 77.098 kg

DRUGS (15)
  1. YASMIN [Suspect]
     Indication: CONTRACEPTION
     Dosage: UNK
     Route: 048
     Dates: start: 20040501, end: 20060501
  2. METAFORMAN [Concomitant]
     Dosage: 750 MG, UNK
     Dates: start: 20050101
  3. WELLBUTRIN [Concomitant]
     Dosage: UNK
     Dates: start: 20050101
  4. YASMIN [Suspect]
     Indication: PREMENSTRUAL SYNDROME
  5. SOMA [Concomitant]
     Indication: MUSCLE SPASMS
     Dosage: 350 MG, UNK
     Dates: start: 20040101
  6. CYMBALTA [Concomitant]
     Dosage: 60 MG, UNK
     Dates: start: 20050101
  7. CHOLESTYRAMINE [Concomitant]
     Dosage: UNK
     Dates: start: 20100511
  8. YAZ [Suspect]
     Indication: CONTRACEPTION
     Dosage: UNK
     Route: 048
     Dates: start: 20060501, end: 20101121
  9. YAZ [Suspect]
     Indication: PREMENSTRUAL SYNDROME
  10. XANAX [Concomitant]
     Dosage: 25 MG, UNK
     Dates: start: 20050101
  11. YAZ [Suspect]
     Indication: ACNE
  12. PROAIR HFA [Concomitant]
     Indication: ASTHMA
     Dosage: UNK
     Dates: start: 20050101
  13. YASMIN [Suspect]
     Indication: ACNE
  14. WELCO [Concomitant]
     Dosage: 600 MG, UNK
     Dates: start: 20100101
  15. PRU [Concomitant]
     Dosage: 50 MG, UNK
     Dates: start: 20040101

REACTIONS (5)
  - CHOLECYSTITIS [None]
  - CHOLECYSTITIS CHRONIC [None]
  - NAUSEA [None]
  - ABDOMINAL PAIN UPPER [None]
  - VOMITING [None]
